FAERS Safety Report 22294409 (Version 1)
Quarter: 2023Q2

REPORT INFORMATION
  Report Type: Spontaneous
  Country: US (occurrence: US)
  Receive Date: 20230508
  Receipt Date: 20230508
  Transmission Date: 20230722
  Serious: No
  Sender: FDA-Public Use
  Company Number: US-009507513-2305USA000391

PATIENT
  Age: 61 Year
  Sex: Male

DRUGS (5)
  1. KEYTRUDA [Suspect]
     Active Substance: PEMBROLIZUMAB
     Indication: Non-small cell lung cancer
     Dosage: UNK
     Route: 042
     Dates: start: 2019
  2. LISINOPRIL [Concomitant]
     Active Substance: LISINOPRIL
     Dosage: UNK
  3. AVER [Concomitant]
     Dosage: UNK
  4. SATIN [Concomitant]
     Dosage: UNK
  5. HUMIRA [Concomitant]
     Active Substance: ADALIMUMAB
     Dosage: UNK

REACTIONS (1)
  - Skin discolouration [Not Recovered/Not Resolved]

NARRATIVE: CASE EVENT DATE: 20230401
